FAERS Safety Report 4895903-8 (Version None)
Quarter: 2006Q1

REPORT INFORMATION
  Report Type: 
  Country: None (occurrence: None)
  Receive Date: 20060130
  Receipt Date: 20050715
  Transmission Date: 20060701
  Serious: Yes (Hospitalization, Other)
  Sender: FDA-Public Use
  Company Number: US-MERCK-0507USA02564

PATIENT
  Age: 50 Year
  Sex: Male
  Weight: 85 kg

DRUGS (9)
  1. VIOXX [Suspect]
     Indication: ARTHRALGIA
     Route: 048
     Dates: start: 20010126, end: 20020101
  2. VIOXX [Suspect]
     Route: 048
     Dates: start: 20030123, end: 20030624
  3. VIOXX [Suspect]
     Indication: PAIN IN EXTREMITY
     Route: 048
     Dates: start: 20010126, end: 20020101
  4. VIOXX [Suspect]
     Route: 048
     Dates: start: 20030123, end: 20030624
  5. HYZAAR [Concomitant]
     Route: 048
  6. MICRO-K [Concomitant]
     Route: 065
  7. ZOLOFT [Concomitant]
     Route: 065
  8. PRILOSEC [Concomitant]
     Route: 065
  9. LIPITOR [Concomitant]
     Route: 065

REACTIONS (21)
  - ACUTE MYOCARDIAL INFARCTION [None]
  - ANGINA UNSTABLE [None]
  - ANXIETY [None]
  - ARTERIOSCLEROSIS [None]
  - ARTHRALGIA [None]
  - CHEST DISCOMFORT [None]
  - CHEST PAIN [None]
  - CORONARY ARTERY DISEASE [None]
  - DEPRESSION [None]
  - DIVERTICULUM [None]
  - DYSPNOEA [None]
  - FATIGUE [None]
  - GOUT [None]
  - HEAT EXHAUSTION [None]
  - HYPOKALAEMIA [None]
  - ILIOTIBIAL BAND SYNDROME [None]
  - ISCHAEMIC CARDIOMYOPATHY [None]
  - MYOCARDIAL INFARCTION [None]
  - OSTEOARTHRITIS [None]
  - SLEEP APNOEA SYNDROME [None]
  - THYROID DISORDER [None]
